FAERS Safety Report 12441904 (Version 2)
Quarter: 2016Q2

REPORT INFORMATION
  Report Type: Spontaneous
  Country: FR (occurrence: FR)
  Receive Date: 20160607
  Receipt Date: 20160627
  Transmission Date: 20160815
  Serious: Yes (Hospitalization, Other)
  Sender: FDA-Public Use
  Company Number: FR-ASTELLAS-2016US021367

PATIENT
  Age: 41 Year
  Sex: Female

DRUGS (3)
  1. ANTILYMPHOCYTE GLOBULIN [Concomitant]
     Active Substance: THYMOCYTE IMMUNE GLOBULIN NOS
     Indication: RENAL AND PANCREAS TRANSPLANT
     Dosage: UNK, UNKNOWN FREQ.
     Route: 065
  2. TACROLIMUS. [Suspect]
     Active Substance: TACROLIMUS
     Indication: RENAL AND PANCREAS TRANSPLANT
     Route: 065
  3. PREDNISONE. [Concomitant]
     Active Substance: PREDNISONE
     Indication: RENAL AND PANCREAS TRANSPLANT
     Route: 065

REACTIONS (12)
  - Pancreatic leak [Unknown]
  - Peritonitis [Recovered/Resolved]
  - Cholestasis [Recovered/Resolved]
  - Epstein-Barr virus infection [Unknown]
  - Septic shock [Unknown]
  - Renal failure [Unknown]
  - Hepatocellular injury [Recovering/Resolving]
  - Liver disorder [Recovered/Resolved]
  - Viraemia [Recovered/Resolved]
  - Off label use [Unknown]
  - Pancreatic insufficiency [Recovered/Resolved]
  - Herpes simplex hepatitis [Recovered/Resolved]
